FAERS Safety Report 14395497 (Version 1)
Quarter: 2018Q1

REPORT INFORMATION
  Report Type: Spontaneous
  Country: US (occurrence: US)
  Receive Date: 20180116
  Receipt Date: 20180116
  Transmission Date: 20180509
  Serious: No
  Sender: FDA-Public Use
  Company Number: US-ALLERGAN-1712168US

PATIENT
  Age: 36 Year
  Sex: Female

DRUGS (2)
  1. BOTOX COSMETIC [Suspect]
     Active Substance: ONABOTULINUMTOXINA
     Indication: SKIN WRINKLING
     Dosage: 39 UNITS, SINGLE
     Route: 030
     Dates: start: 20170224, end: 20170224
  2. BOTOX COSMETIC [Suspect]
     Active Substance: ONABOTULINUMTOXINA
     Indication: SKIN WRINKLING

REACTIONS (12)
  - Insomnia [Not Recovered/Not Resolved]
  - Weight decreased [Unknown]
  - Nausea [Recovering/Resolving]
  - Diarrhoea [Unknown]
  - Vomiting [Unknown]
  - Panic attack [Recovering/Resolving]
  - Dyspepsia [Unknown]
  - Decreased appetite [Unknown]
  - Injection site bruising [Unknown]
  - Bowel movement irregularity [Not Recovered/Not Resolved]
  - Anxiety [Recovering/Resolving]
  - Gastrointestinal disorder [Not Recovered/Not Resolved]

NARRATIVE: CASE EVENT DATE: 2017
